FAERS Safety Report 7932844 (Version 3)
Quarter: 2014Q2

REPORT INFORMATION
  Report Type: Spontaneous
  Country: US (occurrence: US)
  Receive Date: 20110506
  Receipt Date: 20140422
  Transmission Date: 20141212
  Serious: Yes (Hospitalization, Disabling)
  Sender: FDA-Public Use
  Company Number: US-BAYER-201038089NA

PATIENT
  Age: 31 Year
  Sex: Female
  Weight: 77.1 kg

DRUGS (7)
  1. YAZ [Suspect]
  2. YASMIN [Suspect]
     Indication: ACNE
     Dosage: UNK
     Dates: start: 200603, end: 200607
  3. OCELLA [Suspect]
  4. GIANVI [Suspect]
  5. DAILY VITAMINS [Concomitant]
     Indication: PROPHYLAXIS
     Dosage: UNK
     Dates: start: 2001, end: 2006
  6. IBUPROFEN [Concomitant]
     Indication: THROMBOSIS PROPHYLAXIS
     Dosage: UNK
     Dates: start: 2006, end: 2007
  7. ORAL CONTRACEPTIVE NOS [Concomitant]
     Dosage: UNK
     Dates: start: 200607

REACTIONS (6)
  - Pulmonary embolism [None]
  - Deep vein thrombosis [None]
  - Pain [None]
  - Injury [None]
  - Emotional distress [None]
  - Pain [None]
